FAERS Safety Report 24621713 (Version 3)
Quarter: 2024Q4

REPORT INFORMATION
  Report Type: Spontaneous
  Country: US (occurrence: US)
  Receive Date: 20241114
  Receipt Date: 20241225
  Transmission Date: 20250115
  Serious: No
  Sender: SANOFI AVENTIS
  Company Number: US-SA-2024SA327662

PATIENT
  Sex: Female

DRUGS (10)
  1. DUPIXENT [Suspect]
     Active Substance: DUPILUMAB
     Indication: Asthma
     Dosage: 300 MG, QOW
     Route: 058
  2. HYDROXYZINE [Concomitant]
     Active Substance: HYDROXYZINE HYDROCHLORIDE
     Dosage: UNK
  3. LEXAPRO [Concomitant]
     Active Substance: ESCITALOPRAM OXALATE
     Dosage: UNK
  4. MAGNESIUM [Concomitant]
     Active Substance: MAGNESIUM
  5. MAXALT [Concomitant]
     Active Substance: RIZATRIPTAN BENZOATE
  6. NIACIN [Concomitant]
     Active Substance: NIACIN
  7. NORETHIN [Concomitant]
  8. PEPCID [Concomitant]
     Active Substance: FAMOTIDINE
  9. RIBOFLAVIN [Concomitant]
     Active Substance: RIBOFLAVIN
  10. XYZAL [Concomitant]
     Active Substance: LEVOCETIRIZINE DIHYDROCHLORIDE

REACTIONS (2)
  - Drug ineffective [Unknown]
  - Impaired quality of life [Unknown]
